FAERS Safety Report 8767971 (Version 1)
Quarter: 2012Q4

REPORT INFORMATION
  Report Type: 
  Country: BR (occurrence: BR)
  Receive Date: 20120905
  Receipt Date: 20120905
  Transmission Date: 20130627
  Serious: Yes (Hospitalization)
  Sender: FDA-Public Use
  Company Number: BR-B.I. PHARMACEUTICALS,INC./RIDGEFIELD-2012-BR-00980BR

PATIENT
  Age: 76 Year
  Sex: Male

DRUGS (5)
  1. PRADAXA [Suspect]
     Indication: CEREBROVASCULAR ACCIDENT PROPHYLAXIS
     Dosage: 110 mg
     Route: 048
     Dates: start: 20111011, end: 20120611
  2. PRADAXA [Suspect]
     Indication: THROMBOSIS PROPHYLAXIS
  3. SELOZOK [Concomitant]
     Indication: CORONARY ARTERY INSUFFICIENCY
     Route: 048
     Dates: start: 2008
  4. AMIODARONA [Concomitant]
     Indication: ATRIAL FIBRILLATION
     Route: 048
     Dates: start: 2008
  5. LOSARTANA [Concomitant]
     Indication: HYPERTENSION
     Route: 048
     Dates: start: 2008

REACTIONS (2)
  - Acute myocardial infarction [Unknown]
  - Renal impairment [Recovered/Resolved]
